FAERS Safety Report 9458377 (Version 2)
Quarter: 2013Q3

REPORT INFORMATION
  Report Type: Spontaneous
  Country: FI (occurrence: FI)
  Receive Date: 20130814
  Receipt Date: 20130826
  Transmission Date: 20140515
  Serious: Yes (Other)
  Sender: FDA-Public Use
  Company Number: FI-009507513-1308FIN005065

PATIENT
  Age: 25 Year
  Sex: Female

DRUGS (3)
  1. NUVARING [Suspect]
     Dosage: UNK
     Route: 067
     Dates: start: 20130403, end: 2013
  2. ESCITALOPRAM [Concomitant]
     Indication: DYSTHYMIC DISORDER
     Dosage: 20 MG, QD
     Dates: start: 201211
  3. ESCITALOPRAM [Concomitant]
     Indication: DEPRESSION

REACTIONS (4)
  - Abortion induced [Unknown]
  - Unintended pregnancy [Recovered/Resolved]
  - Incorrect product storage [Unknown]
  - Poor quality drug administered [Unknown]
